FAERS Safety Report 14347316 (Version 1)
Quarter: 2018Q1

REPORT INFORMATION
  Report Type: Spontaneous
  Country: US (occurrence: US)
  Receive Date: 20180103
  Receipt Date: 20180103
  Transmission Date: 20180509
  Serious: Yes (Hospitalization, Other)
  Sender: FDA-Public Use
  Company Number: US-DSJP-DSU-2017-138908

PATIENT

DRUGS (4)
  1. BENICAR [Suspect]
     Active Substance: OLMESARTAN MEDOXOMIL
     Dosage: 40 MG, QD
     Route: 048
     Dates: end: 20131017
  2. AZOR [Suspect]
     Active Substance: AMLODIPINE BESYLATE\OLMESARTAN MEDOXOMIL
     Dosage: 10-40MG, QD
     Route: 048
     Dates: start: 20131104, end: 20151215
  3. AZOR [Suspect]
     Active Substance: AMLODIPINE BESYLATE\OLMESARTAN MEDOXOMIL
     Indication: HYPERTENSION
     Dosage: 5-40MG, QD
     Route: 048
     Dates: start: 20131017, end: 20131104
  4. BENICAR [Suspect]
     Active Substance: OLMESARTAN MEDOXOMIL
     Indication: HYPERTENSION
     Dosage: 20 MG, QD
     Route: 048
     Dates: start: 20130822

REACTIONS (6)
  - Duodenal ulcer [Unknown]
  - Sprue-like enteropathy [Recovering/Resolving]
  - Hypotension [Unknown]
  - Haemorrhoids [Unknown]
  - Acute kidney injury [Recovering/Resolving]
  - Coeliac disease [Unknown]

NARRATIVE: CASE EVENT DATE: 20151001
